FAERS Safety Report 17244958 (Version 3)
Quarter: 2020Q1

REPORT INFORMATION
  Report Type: Spontaneous
  Country: BR (occurrence: BR)
  Receive Date: 20200108
  Receipt Date: 20200302
  Transmission Date: 20200409
  Serious: Yes (Death, Hospitalization, Other)
  Sender: FDA-Public Use
  Company Number: BR-AMGEN-BRASP2020001574

PATIENT
  Age: 60 Year
  Sex: Female

DRUGS (1)
  1. ENBREL [Suspect]
     Active Substance: ETANERCEPT
     Indication: RHEUMATOID ARTHRITIS
     Dosage: UNK
     Route: 058

REACTIONS (12)
  - Sepsis [Fatal]
  - Red blood cell sedimentation rate abnormal [Unknown]
  - Diabetes mellitus [Fatal]
  - Dyspnoea [Fatal]
  - Pulmonary fibrosis [Fatal]
  - Condition aggravated [Fatal]
  - Renal failure [Fatal]
  - Coronary artery occlusion [Unknown]
  - Dizziness [Unknown]
  - Cardiac arrest [Fatal]
  - Blood pressure abnormal [Fatal]
  - C-reactive protein abnormal [Unknown]

NARRATIVE: CASE EVENT DATE: 2015
